FAERS Safety Report 11116057 (Version 1)
Quarter: 2015Q2

REPORT INFORMATION
  Report Type: Spontaneous
  Country: US (occurrence: None)
  Receive Date: 20150514
  Receipt Date: 20150514
  Transmission Date: 20150821
  Serious: No
  Sender: FDA-Public Use
  Company Number: None

PATIENT
  Age: 52 Year
  Sex: Female
  Weight: 53.6 kg

DRUGS (1)
  1. INTRON A [Suspect]
     Active Substance: INTERFERON ALFA-2B
     Dosage: 580 MILLION IU
     Dates: end: 20140905

REACTIONS (2)
  - Infusion site discomfort [None]
  - Infusion site erythema [None]

NARRATIVE: CASE EVENT DATE: 20140905
